FAERS Safety Report 4690456-1 (Version None)
Quarter: 2005Q2

REPORT INFORMATION
  Report Type: 
  Country: None (occurrence: None)
  Receive Date: 20050615
  Receipt Date: 20050401
  Transmission Date: 20051028
  Serious: Yes (Death)
  Sender: FDA-Public Use
  Company Number: 2005AP02081

PATIENT
  Age: 28927 Day
  Sex: Male
  Weight: 48.8 kg

DRUGS (12)
  1. IRESSA [Suspect]
     Indication: LUNG ADENOCARCINOMA
     Route: 048
     Dates: start: 20050112, end: 20050201
  2. TAKEPRON [Concomitant]
     Indication: PROPHYLAXIS AGAINST GASTROINTESTINAL ULCER
     Route: 048
  3. CONIEL [Concomitant]
     Indication: HYPERTENSION
     Route: 048
  4. LIORESAL [Concomitant]
     Indication: SPINAL VASCULAR DISORDER
     Route: 048
  5. MEXITIL [Concomitant]
     Indication: EXTRASYSTOLES
     Route: 048
  6. SOLETON [Concomitant]
     Indication: PAIN IN EXTREMITY
     Route: 048
  7. UBRETID [Concomitant]
     Indication: DYSURIA
     Route: 048
  8. BLADDERON [Concomitant]
     Indication: BENIGN PROSTATIC HYPERPLASIA
     Route: 048
  9. DORNER [Concomitant]
     Indication: PAIN IN EXTREMITY
     Route: 048
  10. GASTROM [Concomitant]
     Indication: GASTRITIS
     Route: 048
  11. TRYPTANOL [Concomitant]
     Indication: DEPRESSION
     Route: 048
  12. RADIATION THERAPY [Concomitant]
     Dosage: 23 GY ADMINISTERED TO THE BRAIN
     Dates: start: 20050126

REACTIONS (9)
  - BLOOD LACTATE DEHYDROGENASE INCREASED [None]
  - C-REACTIVE PROTEIN INCREASED [None]
  - CHEST X-RAY ABNORMAL [None]
  - COUGH [None]
  - CREPITATIONS [None]
  - DRUG INEFFECTIVE [None]
  - DYSPNOEA [None]
  - LUNG DISORDER [None]
  - RESPIRATORY FAILURE [None]
